FAERS Safety Report 22163375 (Version 1)
Quarter: 2023Q2

REPORT INFORMATION
  Report Type: Spontaneous
  Country: IT (occurrence: IT)
  Receive Date: 20230401
  Receipt Date: 20230401
  Transmission Date: 20230721
  Serious: Yes (Other)
  Sender: FDA-Public Use
  Company Number: IT-009507513-2303ITA004184

PATIENT
  Age: 78 Year
  Sex: Male

DRUGS (3)
  1. CIPROFLOXACIN [Suspect]
     Active Substance: CIPROFLOXACIN
     Indication: Endocarditis
     Dosage: UNK
     Route: 065
  2. AVIBACTAM SODIUM\CEFTAZIDIME [Suspect]
     Active Substance: AVIBACTAM SODIUM\CEFTAZIDIME
     Indication: Endocarditis
     Dosage: 1 GRAM, ONCE A DAY
     Route: 065
  3. CEFTOLOZANE SULFATE\TAZOBACTAM SODIUM [Suspect]
     Active Substance: CEFTOLOZANE SULFATE\TAZOBACTAM SODIUM
     Indication: Endocarditis
     Dosage: UNK
     Route: 065

REACTIONS (2)
  - Pathogen resistance [Unknown]
  - Product use in unapproved indication [Unknown]
